FAERS Safety Report 6234710-0 (Version None)
Quarter: 2009Q2

REPORT INFORMATION
  Report Type: 
  Country: None (occurrence: None)
  Receive Date: 20090618
  Receipt Date: 20090612
  Transmission Date: 20091009
  Serious: Yes (Disabling, Other)
  Sender: FDA-Public Use
  Company Number: US-ASTRAZENECA-2009UW09708

PATIENT
  Age: 33 Year
  Sex: Female
  Weight: 63.5 kg

DRUGS (3)
  1. SEROQUEL XR [Suspect]
     Indication: BIPOLAR DISORDER
     Route: 048
  2. ABILIFY [Concomitant]
  3. LAMICTAL [Concomitant]

REACTIONS (1)
  - NEURALGIA [None]
